FAERS Safety Report 26135616 (Version 2)
Quarter: 2025Q4

REPORT INFORMATION
  Report Type: Spontaneous
  Country: US (occurrence: US)
  Receive Date: 20251209
  Receipt Date: 20251231
  Transmission Date: 20260118
  Serious: No
  Sender: HETERO
  Company Number: US-HETERO-HET2025US07410

PATIENT
  Sex: Female

DRUGS (1)
  1. PANTOPRAZOLE [Suspect]
     Active Substance: PANTOPRAZOLE
     Indication: Product used for unknown indication
     Dosage: UNK
     Route: 065

REACTIONS (3)
  - Abdominal pain upper [Unknown]
  - Product size issue [Unknown]
  - Drug ineffective [Unknown]
